FAERS Safety Report 7283116-4 (Version None)
Quarter: 2011Q1

REPORT INFORMATION
  Report Type: 
  Country: None (occurrence: None)
  Receive Date: 20110209
  Receipt Date: 20100722
  Transmission Date: 20110831
  Serious: No
  Sender: FDA-Public Use
  Company Number: A0871902A

PATIENT
  Age: 57 Year
  Sex: Female

DRUGS (7)
  1. AMBIEN CR [Concomitant]
  2. CARBIDOPA [Concomitant]
  3. PAXIL CR [Suspect]
     Indication: DEPRESSION
     Dosage: 50MG PER DAY
     Route: 048
  4. PREVACID [Concomitant]
  5. LEVODOPA [Concomitant]
  6. SINGULAIR [Concomitant]
  7. XANAX [Concomitant]

REACTIONS (6)
  - PYREXIA [None]
  - HEADACHE [None]
  - FEELING HOT [None]
  - HOT FLUSH [None]
  - HYPERHIDROSIS [None]
  - LIBIDO DECREASED [None]
